FAERS Safety Report 7922202-X (Version None)
Quarter: 2011Q4

REPORT INFORMATION
  Report Type: 
  Country: None (occurrence: None)
  Receive Date: 20111117
  Receipt Date: 20110202
  Transmission Date: 20120403
  Serious: No
  Sender: FDA-Public Use
  Company Number: US-AMGEN-USASP2010010980

PATIENT
  Age: 38 Year
  Sex: Female

DRUGS (2)
  1. ENBREL [Suspect]
     Indication: RHEUMATOID ARTHRITIS
     Dosage: 50 MG, QWK
     Dates: start: 20091119
  2. TREXALL [Concomitant]
     Dosage: 1 MG, QWK
     Dates: start: 20090501

REACTIONS (12)
  - JOINT STIFFNESS [None]
  - RHEUMATOID ARTHRITIS [None]
  - ARTHRALGIA [None]
  - CHILLS [None]
  - PHARYNGITIS [None]
  - SINUSITIS [None]
  - HEPATIC ENZYME INCREASED [None]
  - HAND DEFORMITY [None]
  - PYREXIA [None]
  - VIRAL INFECTION [None]
  - INTERVERTEBRAL DISC PROTRUSION [None]
  - ROAD TRAFFIC ACCIDENT [None]
